FAERS Safety Report 6702921-3 (Version None)
Quarter: 2010Q2

REPORT INFORMATION
  Report Type: 
  Country: None (occurrence: None)
  Receive Date: 20100429
  Receipt Date: 20100422
  Transmission Date: 20101027
  Serious: Yes (Life-Threatening, Hospitalization)
  Sender: FDA-Public Use
  Company Number: GB-ABBOTT-10P-167-0640403-00

PATIENT
  Age: 18 Year
  Sex: Male

DRUGS (9)
  1. CLARITHROMYCIN [Suspect]
     Indication: DRUG USE FOR UNKNOWN INDICATION
     Route: 042
     Dates: start: 20100408
  2. CEFUROXIME [Suspect]
     Indication: CHOLECYSTITIS
     Route: 042
     Dates: start: 20100406, end: 20100412
  3. METRONIDAZOLE [Concomitant]
     Indication: CHOLECYSTITIS
     Route: 042
     Dates: start: 20100406, end: 20100412
  4. CYCLIZINE [Concomitant]
     Indication: NAUSEA
     Dosage: INTRAVENOUS/ORAL/INTRAMUSCULAR
     Dates: start: 20100407
  5. PARACETAMOL [Concomitant]
     Indication: PAIN
     Route: 048
     Dates: start: 20100405
  6. CODEINE SULFATE [Concomitant]
     Indication: PAIN
     Dosage: 30-60 MG- 4 IN ONE DAY
     Route: 048
     Dates: start: 20100406
  7. FOLIC ACID [Concomitant]
     Indication: DRUG USE FOR UNKNOWN INDICATION
     Dosage: LONG TERM
     Route: 048
  8. PENICILLIN V [Concomitant]
     Indication: DRUG USE FOR UNKNOWN INDICATION
     Dosage: LONG TERM
     Route: 048
  9. CLEXANE [Concomitant]
     Indication: DRUG USE FOR UNKNOWN INDICATION
     Dates: start: 20100410

REACTIONS (8)
  - BLISTER [None]
  - CANDIDIASIS [None]
  - DEHYDRATION [None]
  - LIP SWELLING [None]
  - MOUTH ULCERATION [None]
  - OROPHARYNGEAL PAIN [None]
  - SICKLE CELL ANAEMIA [None]
  - TONGUE DISCOLOURATION [None]
